FAERS Safety Report 9231610 (Version 1)
Quarter: 2013Q2

REPORT INFORMATION
  Report Type: Spontaneous
  Country: FR (occurrence: FR)
  Receive Date: 20130415
  Receipt Date: 20130415
  Transmission Date: 20140414
  Serious: Yes (Hospitalization)
  Sender: FDA-Public Use
  Company Number: FR-ROCHE-1214090

PATIENT
  Age: 51 Year
  Sex: Male

DRUGS (6)
  1. TAMIFLU [Suspect]
     Indication: INFLUENZA LIKE ILLNESS
     Route: 048
     Dates: start: 20130214, end: 20130218
  2. ASPEGIC [Suspect]
     Indication: INFLUENZA LIKE ILLNESS
     Route: 048
     Dates: start: 20130214, end: 20130219
  3. DOLIPRANE [Suspect]
     Indication: INFLUENZA LIKE ILLNESS
     Route: 048
     Dates: start: 20130214, end: 20130219
  4. INEXIUM [Concomitant]
  5. TOPALGIC [Concomitant]
  6. PROFENID [Concomitant]

REACTIONS (1)
  - Hepatitis cholestatic [Recovering/Resolving]
